FAERS Safety Report 6772015-X (Version None)
Quarter: 2010Q2

REPORT INFORMATION
  Report Type: 
  Country: None (occurrence: None)
  Receive Date: 20100616
  Receipt Date: 20090720
  Transmission Date: 20101027
  Serious: No
  Sender: FDA-Public Use
  Company Number: US-ASTRAZENECA-2009SE05325

PATIENT
  Sex: Female

DRUGS (3)
  1. RHINOCORT [Suspect]
     Route: 055
     Dates: start: 20090401
  2. RHINOCORT [Suspect]
     Route: 055
  3. CALCIUM CARBONATE [Concomitant]

REACTIONS (1)
  - FLATULENCE [None]
